FAERS Safety Report 7994779-X (Version None)
Quarter: 2011Q4

REPORT INFORMATION
  Report Type: 
  Country: None (occurrence: None)
  Receive Date: 20111220
  Receipt Date: 20111209
  Transmission Date: 20120403
  Serious: Yes (Other)
  Sender: FDA-Public Use
  Company Number: CN-ROCHE-1009037

PATIENT

DRUGS (3)
  1. OXALIPLATIN [Suspect]
     Indication: COLORECTAL CANCER
     Route: 041
  2. XELODA [Suspect]
     Indication: COLORECTAL CANCER
     Route: 048
  3. ENDOSTATIN [Suspect]
     Indication: COLORECTAL CANCER
     Dosage: AT 7.5 MG/ M2, 15 MG/ DOSE, ADDED TO 500 ML OF SALINE SOLUTION
     Route: 041

REACTIONS (4)
  - PARAESTHESIA [None]
  - PALMAR-PLANTAR ERYTHRODYSAESTHESIA SYNDROME [None]
  - DIARRHOEA [None]
  - THROMBOCYTOPENIA [None]
